FAERS Safety Report 15599067 (Version 1)
Quarter: 2018Q4

REPORT INFORMATION
  Report Type: Spontaneous
  Country: US (occurrence: US)
  Receive Date: 20181108
  Receipt Date: 20181108
  Transmission Date: 20190205
  Serious: No
  Sender: FDA-Public Use
  Company Number: US-PERRIGO-18US004962

PATIENT
  Sex: Female

DRUGS (2)
  1. FAMOTIDINE. [Suspect]
     Active Substance: FAMOTIDINE
     Indication: PRODUCT USED FOR UNKNOWN INDICATION
     Dosage: UNKNOWN, UNKNOWN
     Route: 048
  2. ALL OTHER THERAPEUTIC PRODUCTS [Suspect]
     Active Substance: UNSPECIFIED INGREDIENT
     Indication: ACCIDENTAL EXPOSURE TO PRODUCT
     Dosage: 1 TABLET, SINGLE
     Route: 048
     Dates: start: 20180424, end: 20180424

REACTIONS (2)
  - Malaise [Recovered/Resolved]
  - Exposure to unspecified agent [Recovered/Resolved]

NARRATIVE: CASE EVENT DATE: 20180424
